FAERS Safety Report 11283272 (Version 1)
Quarter: 2015Q3

REPORT INFORMATION
  Report Type: Report from Study
  Country: US (occurrence: US)
  Receive Date: 20150720
  Receipt Date: 20150720
  Transmission Date: 20151125
  Serious: Yes (Hospitalization, Other)
  Sender: FDA-Public Use
  Company Number: US-ACTELION-A-US2015-118065

PATIENT
  Age: 54 Year
  Sex: Male

DRUGS (2)
  1. MACITENTAN [Suspect]
     Active Substance: MACITENTAN
     Indication: PULMONARY HYPERTENSION
     Dosage: 10 MG, QD
     Route: 048
     Dates: start: 20140108
  2. ADCIRCA [Concomitant]
     Active Substance: TADALAFIL

REACTIONS (11)
  - Contusion [Unknown]
  - Cardiac valve disease [Unknown]
  - Balance disorder [Unknown]
  - Chest injury [Unknown]
  - Head injury [Unknown]
  - Oedema [Unknown]
  - Myocardial oedema [Unknown]
  - Fall [Unknown]
  - Condition aggravated [Unknown]
  - Oedema peripheral [Unknown]
  - Dyspnoea [Unknown]

NARRATIVE: CASE EVENT DATE: 20150512
